FAERS Safety Report 13743499 (Version 6)
Quarter: 2017Q4

REPORT INFORMATION
  Report Type: Report from Study
  Country: FR (occurrence: FR)
  Receive Date: 20170711
  Receipt Date: 20171013
  Transmission Date: 20180320
  Serious: Yes (Hospitalization, Disabling)
  Sender: FDA-Public Use
  Company Number: FR-B.I. PHARMACEUTICALS,INC./RIDGEFIELD-2017-BI-037120

PATIENT
  Age: 37 Year
  Sex: Male
  Weight: 97.3 kg

DRUGS (5)
  1. BIBF 1120 [Suspect]
     Active Substance: NINTEDANIB
     Indication: MEDULLARY THYROID CANCER
     Route: 048
     Dates: start: 20170620, end: 20170627
  2. HYDROMORPHONE [Concomitant]
     Active Substance: HYDROMORPHONE
     Indication: PAIN
     Route: 048
     Dates: start: 201705
  3. ZOLEDRONIC [Concomitant]
     Active Substance: ZOLEDRONIC ACID
     Indication: METASTASES TO BONE
     Route: 048
     Dates: start: 201603
  4. DICLOFENAC [Concomitant]
     Active Substance: DICLOFENAC
     Indication: PAIN
     Route: 048
     Dates: start: 201603, end: 20170706
  5. HYDROMORPHONE [Concomitant]
     Active Substance: HYDROMORPHONE
     Route: 048
     Dates: start: 201706, end: 20170627

REACTIONS (1)
  - Pain [Recovered/Resolved]

NARRATIVE: CASE EVENT DATE: 20170627
